FAERS Safety Report 19838729 (Version 1)
Quarter: 2021Q3

REPORT INFORMATION
  Report Type: Spontaneous
  Country: US (occurrence: US)
  Receive Date: 20210915
  Receipt Date: 20210915
  Transmission Date: 20211014
  Serious: Yes (Life-Threatening, Hospitalization)
  Sender: FDA-Public Use
  Company Number: None

PATIENT
  Age: 87 Year
  Sex: Female

DRUGS (1)
  1. RIVAROXABAN [Suspect]
     Active Substance: RIVAROXABAN

REACTIONS (5)
  - Haemoglobin decreased [None]
  - Fatigue [None]
  - Rectal haemorrhage [None]
  - Colitis ulcerative [None]
  - Dyspnoea [None]

NARRATIVE: CASE EVENT DATE: 20210629
